FAERS Safety Report 9727297 (Version 8)
Quarter: 2014Q3

REPORT INFORMATION
  Report Type: Report from Study
  Country: MX (occurrence: MX)
  Receive Date: 20131203
  Receipt Date: 20140814
  Transmission Date: 20150326
  Serious: Yes (Life-Threatening, Hospitalization)
  Sender: FDA-Public Use
  Company Number: MX-BAYER-2013-144987

PATIENT
  Age: 76 Year
  Sex: Female
  Weight: 52 kg

DRUGS (4)
  1. MESTREL [Concomitant]
     Indication: CACHEXIA
     Dosage: DAILY DOSE 160 MG
     Route: 048
     Dates: start: 20131112, end: 20131115
  2. MELOX [Concomitant]
     Active Substance: MELOXICAM
     Indication: MUCOSAL INFLAMMATION
     Dosage: DAILY DOSE 5 MG
     Route: 048
     Dates: start: 20131112, end: 20131115
  3. REGORAFENIB [Suspect]
     Active Substance: REGORAFENIB
     Indication: COLON CANCER
     Dosage: 160 MG/DAY
     Route: 048
     Dates: start: 20131026, end: 20131115
  4. OMEPRAZOL [Concomitant]
     Active Substance: OMEPRAZOLE
     Indication: GASTRITIS
     Dosage: DAILY DOSE 20 MG
     Route: 048
     Dates: start: 20130906, end: 20131115

REACTIONS (1)
  - Thrombocytopenia [Recovered/Resolved]

NARRATIVE: CASE EVENT DATE: 20131116
